FAERS Safety Report 23512355 (Version 2)
Quarter: 2024Q2

REPORT INFORMATION
  Report Type: Report from Study
  Country: JP (occurrence: JP)
  Receive Date: 20240212
  Receipt Date: 20240516
  Transmission Date: 20240716
  Serious: Yes (Other)
  Sender: FDA-Public Use
  Company Number: JP-ORPHANEU-2024000807

PATIENT

DRUGS (3)
  1. ISTURISA [Suspect]
     Active Substance: OSILODROSTAT PHOSPHATE
     Indication: Cushing^s syndrome
     Dosage: 1 MILLIGRAM, QD
     Route: 065
     Dates: start: 20230124, end: 20230814
  2. ISTURISA [Suspect]
     Active Substance: OSILODROSTAT PHOSPHATE
     Dosage: 1 MILLIGRAM, QD
     Route: 065
     Dates: start: 20230826
  3. ONEALFA [Concomitant]
     Active Substance: ALFACALCIDOL
     Indication: Disease complication
     Dosage: 0.5 MICROGRAM
     Route: 048

REACTIONS (3)
  - Pyelitis [Recovering/Resolving]
  - Calculus urinary [Recovering/Resolving]
  - Off label use [Recovered/Resolved]

NARRATIVE: CASE EVENT DATE: 20230124
